FAERS Safety Report 11497544 (Version 1)
Quarter: 2015Q3

REPORT INFORMATION
  Report Type: Spontaneous
  Country: CA (occurrence: CA)
  Receive Date: 20150911
  Receipt Date: 20150911
  Transmission Date: 20151125
  Serious: Yes (Hospitalization, Other)
  Sender: FDA-Public Use
  Company Number: CA-PFIZER INC-2015301880

PATIENT
  Age: 51 Year
  Sex: Female
  Weight: 91 kg

DRUGS (26)
  1. ATORVASTATIN CALCIUM. [Concomitant]
     Active Substance: ATORVASTATIN CALCIUM
  2. ACID CONCENTRATE D12265 [Suspect]
     Active Substance: ACETIC ACID\CALCIUM CHLORIDE\DEXTROSE\MAGNESIUM CHLORIDE\POTASSIUM CHLORIDE\SODIUM CHLORIDE
     Indication: HAEMODIALYSIS
     Route: 010
  3. BICART /00049401/ [Suspect]
     Active Substance: SODIUM BICARBONATE
     Indication: HAEMODIALYSIS
     Route: 010
  4. AMITRIPTYLINE [Concomitant]
     Active Substance: AMITRIPTYLINE
  5. CITALOPRAM [Concomitant]
     Active Substance: CITALOPRAM HYDROBROMIDE
  6. TERBUTALINE [Concomitant]
     Active Substance: TERBUTALINE
  7. DOCUSATE SODIUM. [Concomitant]
     Active Substance: DOCUSATE SODIUM
  8. INSULIN NPH /01223208/ [Concomitant]
  9. SODIUM CITRATE. [Concomitant]
     Active Substance: SODIUM CITRATE
  10. SYMBICORT [Concomitant]
     Active Substance: BUDESONIDE\FORMOTEROL FUMARATE DIHYDRATE
  11. HEPARIN SODIUM. [Suspect]
     Active Substance: HEPARIN SODIUM
     Indication: HAEMODIALYSIS
     Dosage: 1000 IU, UNK
     Route: 010
  12. DIMENHYDRINATE. [Concomitant]
     Active Substance: DIMENHYDRINATE
  13. HUMALOG [Concomitant]
     Active Substance: INSULIN LISPRO
  14. BISOPROLOL [Concomitant]
     Active Substance: BISOPROLOL
  15. FERROUS FUMARATE [Concomitant]
     Active Substance: FERROUS FUMARATE
  16. FERROUS GLUCONATE [Concomitant]
     Active Substance: FERROUS GLUCONATE
  17. SODIUM CHLORIDE. [Suspect]
     Active Substance: SODIUM CHLORIDE
     Indication: HAEMODIALYSIS
     Dosage: 0.9 %, UNK
     Route: 010
  18. ACETAMINOPHEN. [Concomitant]
     Active Substance: ACETAMINOPHEN
  19. ARANESP [Concomitant]
     Active Substance: DARBEPOETIN ALFA
  20. ESOMEPRAZOLE [Concomitant]
     Active Substance: ESOMEPRAZOLE
  21. SEVELAMER [Concomitant]
     Active Substance: SEVELAMER
     Dosage: UNK
  22. DOMPERIDONE [Concomitant]
     Active Substance: DOMPERIDONE
  23. ONE ALPHA [Concomitant]
     Active Substance: ALFACALCIDOL
  24. PREDNISONE. [Concomitant]
     Active Substance: PREDNISONE
  25. PROCHLORPERAZINE. [Concomitant]
     Active Substance: PROCHLORPERAZINE
  26. SENNOSIDES. [Concomitant]
     Active Substance: SENNOSIDES

REACTIONS (5)
  - Amnesia [Unknown]
  - Loss of consciousness [Unknown]
  - Anaemia [Unknown]
  - Drug administration error [Unknown]
  - Haemorrhage [Unknown]
